FAERS Safety Report 10755839 (Version 1)
Quarter: 2015Q1

REPORT INFORMATION
  Report Type: Spontaneous
  Country: TW (occurrence: TW)
  Receive Date: 20150202
  Receipt Date: 20150202
  Transmission Date: 20150721
  Serious: Yes (Death, Hospitalization)
  Sender: FDA-Public Use
  Company Number: TW-PFIZER INC-2015036738

PATIENT
  Age: 59 Year
  Sex: Female

DRUGS (1)
  1. CAMPTO [Suspect]
     Active Substance: IRINOTECAN
     Indication: RECTAL CANCER
     Dosage: 280 MG, EVERY 2 WEEKS
     Route: 042
     Dates: start: 20140416

REACTIONS (7)
  - Disease progression [Unknown]
  - Choking [Fatal]
  - Renal cancer [Unknown]
  - Mycoplasma infection [Unknown]
  - Dyspnoea [Fatal]
  - Pain [Unknown]
  - Decreased appetite [Unknown]

NARRATIVE: CASE EVENT DATE: 2014
